FAERS Safety Report 5192598-3 (Version None)
Quarter: 2006Q4

REPORT INFORMATION
  Report Type: 
  Country: None (occurrence: None)
  Receive Date: 20061220
  Receipt Date: 20061209
  Transmission Date: 20070319
  Serious: Yes (Disabling, Other)
  Sender: FDA-Public Use
  Company Number: 2006141402

PATIENT
  Sex: Female

DRUGS (2)
  1. LIPITOR [Suspect]
     Indication: BLOOD CHOLESTEROL INCREASED
     Dosage: 10 MG (10 MG, 1 IN 1 D), ORAL
     Route: 048
     Dates: start: 20020101, end: 20040101
  2. MULTIVITAMIN [Concomitant]

REACTIONS (10)
  - ASTHENIA [None]
  - CATARACT [None]
  - DEMENTIA ALZHEIMER'S TYPE [None]
  - FALL [None]
  - GAIT DISTURBANCE [None]
  - ILL-DEFINED DISORDER [None]
  - MENTAL DISORDER [None]
  - MUSCLE DISORDER [None]
  - VISION BLURRED [None]
  - VISUAL DISTURBANCE [None]
